FAERS Safety Report 6530817-9 (Version None)
Quarter: 2010Q1

REPORT INFORMATION
  Report Type: 
  Country: None (occurrence: None)
  Receive Date: 20100108
  Receipt Date: 20090325
  Transmission Date: 20100710
  Serious: No
  Sender: FDA-Public Use
  Company Number: A0773805A

PATIENT
  Age: 61 Year
  Sex: Female

DRUGS (2)
  1. LOVAZA [Suspect]
     Dosage: 4CAP VARIABLE DOSE
     Route: 048
     Dates: start: 20090215
  2. BONIVA [Concomitant]

REACTIONS (3)
  - BREATH ODOUR [None]
  - ERUCTATION [None]
  - NAUSEA [None]
